FAERS Safety Report 11240159 (Version 3)
Quarter: 2015Q3

REPORT INFORMATION
  Report Type: Spontaneous
  Country: ES (occurrence: ES)
  Receive Date: 20150706
  Receipt Date: 20150717
  Transmission Date: 20151125
  Serious: Yes (Death)
  Sender: FDA-Public Use
  Company Number: ES-PFIZER INC-2015222150

PATIENT
  Age: 30 Year
  Sex: Male

DRUGS (4)
  1. TRANKIMAZIN [Interacting]
     Active Substance: ALPRAZOLAM
  2. LYRICA [Suspect]
     Active Substance: PREGABALIN
     Dosage: UNK
  3. TRANXILIUM [Interacting]
     Active Substance: CLORAZEPATE DIPOTASSIUM
  4. HEROIN [Interacting]
     Active Substance: DIACETYLMORPHINE

REACTIONS (4)
  - Theft [Unknown]
  - Drug abuse [Fatal]
  - Cardio-respiratory arrest [Fatal]
  - Drug interaction [Fatal]

NARRATIVE: CASE EVENT DATE: 201506
